FAERS Safety Report 9932144 (Version 1)
Quarter: 2014Q1

REPORT INFORMATION
  Report Type: Spontaneous
  Country: US (occurrence: None)
  Receive Date: 20140227
  Receipt Date: 20140227
  Transmission Date: 20141002
  Serious: Yes (Other)
  Sender: FDA-Public Use
  Company Number: None

PATIENT
  Age: 20 Year
  Sex: Male

DRUGS (1)
  1. HUMIRA 40MG ABBVIE [Suspect]
     Dosage: EVERY TWO WEEKS
     Route: 058
     Dates: start: 20131101, end: 20140129

REACTIONS (3)
  - Cough [None]
  - Alopecia [None]
  - Skin mass [None]
